FAERS Safety Report 14790194 (Version 1)
Quarter: 2018Q2

REPORT INFORMATION
  Report Type: Spontaneous
  Country: CA (occurrence: CA)
  Receive Date: 20180423
  Receipt Date: 20180423
  Transmission Date: 20180711
  Serious: Yes (Death, Hospitalization)
  Sender: FDA-Public Use
  Company Number: CA-TEVA-2018-CA-882735

PATIENT
  Age: 82 Year
  Sex: Female
  Weight: 48 kg

DRUGS (12)
  1. BENTYLOL [Concomitant]
     Active Substance: DICYCLOMINE HYDROCHLORIDE
  2. CRESTOR [Concomitant]
     Active Substance: ROSUVASTATIN CALCIUM
  3. CALCIUM [Concomitant]
     Active Substance: CALCIUM
  4. FOSAMAX [Concomitant]
     Active Substance: ALENDRONATE SODIUM
  5. VITAMIN D [Concomitant]
     Active Substance: CHOLECALCIFEROL
  6. ZANTAC [Concomitant]
     Active Substance: RANITIDINE HYDROCHLORIDE
  7. AMOXIL [Concomitant]
     Active Substance: AMOXICILLIN
  8. METRONIDAZOLE. [Suspect]
     Active Substance: METRONIDAZOLE
     Indication: GASTRITIS BACTERIAL
     Route: 048
  9. ALVESCO [Concomitant]
     Active Substance: CICLESONIDE
  10. XARELTO [Concomitant]
     Active Substance: RIVAROXABAN
  11. FERROUS SULFATE. [Concomitant]
     Active Substance: FERROUS SULFATE
  12. PREVACID [Concomitant]
     Active Substance: LANSOPRAZOLE

REACTIONS (12)
  - Acute kidney injury [Fatal]
  - Ascites [Fatal]
  - Palliative care [Fatal]
  - Pneumonia klebsiella [Fatal]
  - Vomiting [Fatal]
  - Blood culture positive [Fatal]
  - Coagulopathy [Fatal]
  - Haemodynamic instability [Fatal]
  - Pancreatitis [Fatal]
  - Intensive care [Fatal]
  - Abdominal pain [Fatal]
  - Cardiogenic shock [Fatal]
